FAERS Safety Report 4983619-9 (Version None)
Quarter: 2006Q2

REPORT INFORMATION
  Report Type: 
  Country: None (occurrence: None)
  Receive Date: 20060425
  Receipt Date: 20060425
  Transmission Date: 20061013
  Serious: Yes (Life-Threatening)
  Sender: FDA-Public Use
  Company Number: None

PATIENT
  Sex: Male
  Weight: 68.9467 kg

DRUGS (8)
  1. MIDAZOLAM HCL [Suspect]
     Indication: BRONCHOSCOPY
     Dosage: ONE DOSE
  2. PROPOFOL [Suspect]
  3. ... [Concomitant]
  4. ... [Concomitant]
  5. ... [Concomitant]
  6. .... [Concomitant]
  7. ... [Concomitant]
  8. ... [Concomitant]

REACTIONS (3)
  - CYANOSIS [None]
  - MENTAL STATUS CHANGES [None]
  - RESPIRATORY FAILURE [None]
